FAERS Safety Report 21683571 (Version 1)
Quarter: 2022Q4

REPORT INFORMATION
  Report Type: Spontaneous
  Country: US (occurrence: None)
  Receive Date: 20221202
  Receipt Date: 20221202
  Transmission Date: 20230113
  Serious: Yes (Death, Hospitalization)
  Sender: FDA-Public Use
  Company Number: None

PATIENT
  Age: 82 Year
  Sex: Female
  Weight: 79.6 kg

DRUGS (2)
  1. TICAGRELOR [Suspect]
     Active Substance: TICAGRELOR
     Indication: Coronary artery disease
     Dosage: FREQUENCY : TWICE A DAY;?
     Route: 048
     Dates: start: 20220829, end: 20220901
  2. NEBIVOLOL [Suspect]
     Active Substance: NEBIVOLOL
     Indication: Coronary artery disease
     Dosage: FREQUENCY : DAILY;?
     Route: 048

REACTIONS (6)
  - Hypoxia [None]
  - Chest pain [None]
  - Atrioventricular block complete [None]
  - International normalised ratio abnormal [None]
  - Pneumonia [None]
  - Cardio-respiratory arrest [None]

NARRATIVE: CASE EVENT DATE: 20220831
